FAERS Safety Report 22129114 (Version 1)
Quarter: 2023Q1

REPORT INFORMATION
  Report Type: Spontaneous
  Country: None (occurrence: US)
  Receive Date: 20230323
  Receipt Date: 20230323
  Transmission Date: 20230418
  Serious: No
  Sender: FDA-Public Use
  Company Number: US-Kindeva Drug Delivery L.P.-2139399

PATIENT
  Age: 72 Year
  Sex: Female

DRUGS (5)
  1. ALBUTEROL SULFATE [Suspect]
     Active Substance: ALBUTEROL SULFATE
  2. ENALAPRIL [Concomitant]
     Active Substance: ENALAPRIL
  3. FLUTICASONE PROPIONATE [Concomitant]
     Active Substance: FLUTICASONE PROPIONATE
     Route: 055
  4. FLUTICASONE PROPIONATE 110UG [Concomitant]
     Route: 055
  5. LORATADINE [Concomitant]
     Active Substance: LORATADINE

REACTIONS (3)
  - Palpitations [Unknown]
  - Drug intolerance [Recovered/Resolved]
  - Anxiety [Unknown]
